FAERS Safety Report 6291364-5 (Version None)
Quarter: 2009Q3

REPORT INFORMATION
  Report Type: 
  Country: None (occurrence: None)
  Receive Date: 20090728
  Receipt Date: 20090728
  Transmission Date: 20100115
  Serious: Yes (Life-Threatening)
  Sender: FDA-Public Use
  Company Number: None

PATIENT
  Age: 16 Year
  Sex: Male
  Weight: 86.1834 kg

DRUGS (1)
  1. HYDROCORTISONE [Suspect]
     Indication: ADRENOGENITAL SYNDROME
     Dosage: 3 TABS AM PO   2 TABS PM PO
     Route: 048
     Dates: start: 20070611, end: 20080201

REACTIONS (6)
  - 17-HYDROXYPROGESTERONE INCREASED [None]
  - ADRENOCORTICAL INSUFFICIENCY ACUTE [None]
  - EXERCISE TOLERANCE DECREASED [None]
  - LABORATORY TEST ABNORMAL [None]
  - PRODUCT SUBSTITUTION ISSUE [None]
  - QUALITY OF LIFE DECREASED [None]
